FAERS Safety Report 4598251-9 (Version None)
Quarter: 2005Q1

REPORT INFORMATION
  Report Type: 
  Country: None (occurrence: None)
  Receive Date: 20050304
  Receipt Date: 20050204
  Transmission Date: 20050727
  Serious: Yes (Other)
  Sender: FDA-Public Use
  Company Number: US-GLAXOSMITHKLINE-A0544127A

PATIENT

DRUGS (2)
  1. BUPROPION HCL [Suspect]
     Indication: DRUG USE FOR UNKNOWN INDICATION
     Route: 048
  2. ULTRAM [Concomitant]
     Route: 065

REACTIONS (3)
  - AMNESIA [None]
  - CONVULSION [None]
  - ROAD TRAFFIC ACCIDENT [None]
